FAERS Safety Report 4955135-1 (Version None)
Quarter: 2006Q1

REPORT INFORMATION
  Report Type: 
  Country: None (occurrence: None)
  Receive Date: 20060322
  Receipt Date: 20060309
  Transmission Date: 20060701
  Serious: Yes (Hospitalization, Disabling, Other)
  Sender: FDA-Public Use
  Company Number: 2006033703

PATIENT
  Age: 39 Year
  Sex: Female
  Weight: 126.1 kg

DRUGS (16)
  1. DILANTIN [Suspect]
     Indication: CONVULSION
  2. NEURONTIN [Suspect]
     Indication: NEURALGIA
     Dates: end: 20060201
  3. NORVASC [Suspect]
     Indication: HYPERTENSION
     Dosage: 10 MG (10 MG, 1 IN 1 D)
     Dates: start: 19990101
  4. CELEBREX [Suspect]
     Indication: SPINAL OSTEOARTHRITIS
     Dosage: 400 MG (200 MG, 2 IN 1 D)
  5. HYDROCHLOROTHIAZIDE [Concomitant]
  6. CLONIDINE [Concomitant]
  7. FOLTX (CYANOCOBALAMIN, FOLIC ACID, PYRIDOXINE) [Concomitant]
  8. WELLBUTRIN [Concomitant]
  9. CAFERGOT [Concomitant]
  10. CLONAZEPAM [Concomitant]
  11. NEXIUM [Concomitant]
  12. SINGULAIR [Concomitant]
  13. ASTELIN [Concomitant]
  14. ADVAIR DISKUS              (FLUTICASONE PROPIONATE, SALMETEROL XINAFOA [Concomitant]
  15. ALL OTHER THERAPEUTIC PRODUCTS [Concomitant]
  16. ACETAMINOPHEN AND HYDROCODONE BITARTRATE [Concomitant]

REACTIONS (7)
  - CEREBROVASCULAR ACCIDENT [None]
  - CONDITION AGGRAVATED [None]
  - DRUG INEFFECTIVE [None]
  - INTERVERTEBRAL DISC PROTRUSION [None]
  - JOINT ANKYLOSIS [None]
  - MIGRAINE [None]
  - SPINAL OSTEOARTHRITIS [None]
